FAERS Safety Report 24991153 (Version 3)
Quarter: 2025Q1

REPORT INFORMATION
  Report Type: Spontaneous
  Country: US (occurrence: US)
  Receive Date: 20250220
  Receipt Date: 20250226
  Transmission Date: 20250409
  Serious: Yes (Life-Threatening, Hospitalization)
  Sender: PFIZER
  Company Number: US-PFIZER INC-202400334663

PATIENT
  Age: 74 Year
  Sex: Female
  Weight: 97.98 kg

DRUGS (1)
  1. HYDROCORTISONE [Suspect]
     Active Substance: HYDROCORTISONE
     Indication: Addison^s disease
     Dosage: 10MG IN THE MORNING AND 10MG IN THE AFTERNOON

REACTIONS (2)
  - Adrenocortical insufficiency acute [Unknown]
  - Product name confusion [Unknown]

NARRATIVE: CASE EVENT DATE: 20241027
